FAERS Safety Report 4450149-2 (Version None)
Quarter: 2004Q3

REPORT INFORMATION
  Report Type: 
  Country: None (occurrence: None)
  Receive Date: 20040910
  Receipt Date: 20040908
  Transmission Date: 20050211
  Serious: Yes (Hospitalization)
  Sender: FDA-Public Use
  Company Number: FR9369710DEC2002

PATIENT
  Age: 46 Year
  Sex: Male

DRUGS (14)
  1. REFACTO [Suspect]
     Indication: FACTOR VIII DEFICIENCY
     Dosage: 25 IU/KG/INJ ON DEMAND; INTRAVENOUS (SEE IMAGE)
     Route: 042
     Dates: start: 20010323, end: 20021119
  2. REFACTO [Suspect]
     Indication: FACTOR VIII DEFICIENCY
     Dosage: 25 IU/KG/INJ ON DEMAND; INTRAVENOUS (SEE IMAGE)
     Route: 042
     Dates: start: 20021120, end: 20021120
  3. REFACTO [Suspect]
     Indication: FACTOR VIII DEFICIENCY
     Dosage: 25 IU/KG/INJ ON DEMAND; INTRAVENOUS (SEE IMAGE)
     Route: 042
     Dates: start: 20021121, end: 20021121
  4. REFACTO [Suspect]
     Indication: FACTOR VIII DEFICIENCY
     Dosage: 25 IU/KG/INJ ON DEMAND; INTRAVENOUS (SEE IMAGE)
     Route: 042
     Dates: start: 20021122, end: 20021123
  5. REFACTO [Suspect]
  6. REFACTO [Suspect]
  7. REFACTO [Suspect]
  8. REFACTO [Suspect]
  9. REFACTO [Suspect]
  10. REFACTO [Suspect]
  11. REFACTO [Suspect]
  12. REFACTO [Suspect]
  13. REFACTO [Suspect]
  14. PRITOR(TELMISARTAN) [Concomitant]

REACTIONS (7)
  - COAGULATION FACTOR VIII LEVEL DECREASED [None]
  - DRUG SPECIFIC ANTIBODY PRESENT [None]
  - EPISTAXIS [None]
  - HAEMARTHROSIS [None]
  - HAEMATOMA [None]
  - NASAL MUCOSAL DISORDER [None]
  - POST PROCEDURAL HAEMORRHAGE [None]
